FAERS Safety Report 24429044 (Version 2)
Quarter: 2025Q1

REPORT INFORMATION
  Report Type: Spontaneous
  Country: US (occurrence: US)
  Receive Date: 20241011
  Receipt Date: 20250109
  Transmission Date: 20250409
  Serious: Yes (Hospitalization)
  Sender: JOHNSON AND JOHNSON
  Company Number: US-JNJFOC-20241005676

PATIENT
  Age: 78 Year
  Sex: Male
  Weight: 75.5 kg

DRUGS (5)
  1. CARVYKTI [Suspect]
     Active Substance: CILTACABTAGENE AUTOLEUCEL
     Indication: Plasma cell myeloma
     Route: 065
     Dates: start: 20240916, end: 20240916
  2. ASPIRIN [Concomitant]
     Active Substance: ASPIRIN
     Indication: Coronary artery disease
     Dates: start: 20240306, end: 20241017
  3. CALCIUM CARBONATE\CHOLECALCIFEROL [Concomitant]
     Active Substance: CALCIUM CARBONATE\CHOLECALCIFEROL
     Dates: start: 20230725
  4. multivitamin with folic acid [Concomitant]
     Route: 048
     Dates: start: 20240306
  5. multivitamin with folic acid [Concomitant]
     Route: 048
     Dates: start: 20240306

REACTIONS (6)
  - Immune effector cell-associated HLH-like syndrome [Recovering/Resolving]
  - Diarrhoea [Recovered/Resolved]
  - Oedema peripheral [Unknown]
  - Arthralgia [Recovering/Resolving]
  - Visual impairment [Unknown]
  - Productive cough [Unknown]

NARRATIVE: CASE EVENT DATE: 20240926
